FAERS Safety Report 6759248-3 (Version None)
Quarter: 2010Q2

REPORT INFORMATION
  Report Type: 
  Country: None (occurrence: None)
  Receive Date: 20100607
  Receipt Date: 20100526
  Transmission Date: 20101027
  Serious: Yes (Other)
  Sender: FDA-Public Use
  Company Number: AU-PFIZER INC-2010067053

PATIENT
  Age: 61 Year
  Sex: Female

DRUGS (6)
  1. REVATIO [Suspect]
     Indication: PULMONARY HYPERTENSION
     Dosage: 20 MG, 3X/DAY
  2. BOSENTAN [Concomitant]
     Dosage: 125 MG, 2X/DAY
  3. LASIX [Concomitant]
     Dosage: 60 MG EACH AM, 40 MG EACH MIDDAY
  4. ALDACTONE [Concomitant]
     Dosage: 25 MG, 1X/DAY
  5. SPIRIVA [Concomitant]
     Dosage: UNK
  6. NEXIUM [Concomitant]
     Dosage: UNK

REACTIONS (1)
  - PULMONARY HYPERTENSION [None]
